FAERS Safety Report 5502098-6 (Version None)
Quarter: 2007Q4

REPORT INFORMATION
  Report Type: 
  Country: None (occurrence: None)
  Receive Date: 20071019
  Receipt Date: 20070115
  Transmission Date: 20080405
  Serious: Yes (Other)
  Sender: FDA-Public Use
  Company Number: PHEH2007US00478

PATIENT
  Age: 75 Year
  Sex: Male

DRUGS (7)
  1. ZOMETA [Suspect]
     Indication: MULTIPLE MYELOMA
     Dosage: 4MG Q28D; 4MG Q28D
     Dates: start: 20020611, end: 20050314
  2. ZOMETA [Suspect]
     Indication: MULTIPLE MYELOMA
     Dosage: 4MG Q28D; 4MG Q28D
     Dates: start: 20050314, end: 20061011
  3. ALKERAN [Concomitant]
  4. METOPROLOL TARTRATE [Concomitant]
  5. FENTANYL [Concomitant]
  6. NAPROXEN [Concomitant]
  7. PRILOSEC [Concomitant]

REACTIONS (4)
  - BLOOD CREATININE INCREASED [None]
  - CREATININE RENAL CLEARANCE DECREASED [None]
  - OSTEOLYSIS [None]
  - RENAL IMPAIRMENT [None]
